FAERS Safety Report 17155309 (Version 2)
Quarter: 2025Q2

REPORT INFORMATION
  Report Type: Spontaneous
  Country: US (occurrence: US)
  Receive Date: 20191215
  Receipt Date: 20250521
  Transmission Date: 20250716
  Serious: No
  Sender: NOVARTIS
  Company Number: US-NOVARTISTESTPH-NVSC2019US004189

PATIENT
  Sex: Female

DRUGS (2)
  1. TAFINLAR [Suspect]
     Active Substance: DABRAFENIB MESYLATE
     Indication: Malignant melanoma
     Dosage: 150 MG, Q12H
     Route: 048
     Dates: start: 20190911
  2. MEKINIST [Suspect]
     Active Substance: TRAMETINIB DIMETHYL SULFOXIDE
     Indication: Malignant melanoma
     Dosage: 2 MG, QD
     Route: 048
     Dates: start: 20190911

REACTIONS (3)
  - Pyrexia [Unknown]
  - Chills [Unknown]
  - Decreased appetite [Unknown]
